FAERS Safety Report 9881209 (Version 3)
Quarter: 2014Q2

REPORT INFORMATION
  Report Type: Report from Study
  Country: BR (occurrence: BR)
  Receive Date: 20140207
  Receipt Date: 20140509
  Transmission Date: 20141212
  Serious: Yes (Hospitalization, Other)
  Sender: FDA-Public Use
  Company Number: PHHY2014BR014913

PATIENT
  Age: 92 Year
  Sex: Female
  Weight: 64 kg

DRUGS (6)
  1. EXELON PATCH [Suspect]
     Indication: MEMORY IMPAIRMENT
     Dosage: 9.5 MG, A DAY (PATCH 10 CM2)
     Route: 062
     Dates: end: 20131227
  2. EXELON PATCH [Suspect]
     Dosage: UNK UKN, UNK
     Route: 062
     Dates: start: 20140428
  3. ASPIRINA PREVENT [Concomitant]
     Indication: ANTICOAGULANT THERAPY
     Dosage: 1 DF, QD (AFTER LUNCH)
  4. ARADOIS [Concomitant]
     Indication: BLOOD PRESSURE ABNORMAL
     Dosage: 1 DF, QD (IN THE MORNING)
  5. VASLIP [Concomitant]
     Indication: BLOOD CHOLESTEROL ABNORMAL
     Dosage: 1 DF, QHS (AT NIGHT)
  6. PROCIMAX [Concomitant]
     Indication: ANTIDEPRESSANT THERAPY
     Dosage: 1 DF, QD (IN THE MORNING)

REACTIONS (9)
  - Pneumonia [Recovered/Resolved]
  - Head injury [Unknown]
  - Arterial disorder [Unknown]
  - Wound necrosis [Unknown]
  - Balance disorder [Unknown]
  - Spinal disorder [Unknown]
  - Muscular weakness [Recovered/Resolved]
  - Anaemia [Recovered/Resolved]
  - Fall [Recovered/Resolved]
